FAERS Safety Report 19145416 (Version 2)
Quarter: 2021Q3

REPORT INFORMATION
  Report Type: Spontaneous
  Country: US (occurrence: US)
  Receive Date: 20210416
  Receipt Date: 20210923
  Transmission Date: 20211014
  Serious: No
  Sender: FDA-Public Use
  Company Number: US-LEO PHARMA-335736

PATIENT
  Sex: Male

DRUGS (4)
  1. FLUOROURACIL 5% [Suspect]
     Active Substance: FLUOROURACIL
     Indication: RASH MACULAR
     Dates: start: 20210328, end: 20210331
  2. CALCIPOTRIENE CREAM 0.005% [Suspect]
     Active Substance: CALCIPOTRIENE
     Indication: SKIN EXFOLIATION
     Dates: start: 20210328, end: 20210331
  3. CALCIPOTRIENE CREAM 0.005% [Suspect]
     Active Substance: CALCIPOTRIENE
     Indication: RASH MACULAR
     Dates: start: 20210328, end: 20210331
  4. FLUOROURACIL 5% [Suspect]
     Active Substance: FLUOROURACIL
     Indication: SKIN EXFOLIATION
     Dates: start: 20210328, end: 20210331

REACTIONS (6)
  - Product administered at inappropriate site [Unknown]
  - Application site pain [Recovered/Resolved]
  - Application site exfoliation [Recovered/Resolved]
  - Product use in unapproved indication [Unknown]
  - Wrong technique in product usage process [Unknown]
  - Off label use [Unknown]
